FAERS Safety Report 9185074 (Version 1)
Quarter: 2012Q4

REPORT INFORMATION
  Report Type: 
  Country: US (occurrence: US)
  Receive Date: 20121101
  Receipt Date: 20121101
  Transmission Date: 20130627
  Serious: No
  Sender: FDA-Public Use
  Company Number: US-PFIZER INC-2012270578

PATIENT
  Age: 46 Year
  Sex: Female

DRUGS (4)
  1. DOXYCYCLINE HYCLATE [Suspect]
     Dosage: UNK
  2. ALTACE [Suspect]
     Dosage: UNK
  3. BENZYLPENICILLIN POTASSIUM [Suspect]
     Dosage: UNK
  4. CEFALEXIN [Suspect]
     Dosage: UNK

REACTIONS (2)
  - Drug hypersensitivity [Unknown]
  - Respiratory disorder [Unknown]
